FAERS Safety Report 10591938 (Version 5)
Quarter: 2015Q1

REPORT INFORMATION
  Report Type: Spontaneous
  Country: US (occurrence: US)
  Receive Date: 20141119
  Receipt Date: 20150302
  Transmission Date: 20150720
  Serious: Yes (Hospitalization, Other)
  Sender: FDA-Public Use
  Company Number: US-JNJFOC-20141107717

PATIENT
  Sex: Female

DRUGS (13)
  1. TYLENOL PM EXTRA STRENGTH [Suspect]
     Active Substance: ACETAMINOPHEN\DIPHENHYDRAMINE HYDROCHLORIDE
     Indication: DYSMENORRHOEA
     Dosage: DOSAGE: APPROXIMATELY 9
     Route: 048
     Dates: start: 201210, end: 201211
  2. LORTAB [Concomitant]
     Active Substance: ACETAMINOPHEN\HYDROCODONE BITARTRATE
     Indication: BACK PAIN
     Dosage: DOSAGE: 2
     Route: 065
     Dates: start: 2012
  3. LORTAB [Concomitant]
     Active Substance: ACETAMINOPHEN\HYDROCODONE BITARTRATE
     Indication: MIGRAINE
     Dosage: DOSAGE: 2
     Route: 065
     Dates: start: 2012
  4. LORTAB [Concomitant]
     Active Substance: ACETAMINOPHEN\HYDROCODONE BITARTRATE
     Indication: DYSMENORRHOEA
     Dosage: DOSAGE: 2
     Route: 065
     Dates: start: 2012
  5. PERCOCET [Suspect]
     Active Substance: ACETAMINOPHEN\OXYCODONE HYDROCHLORIDE
     Indication: BACK PAIN
     Dosage: DOSE: 10-325
     Route: 065
     Dates: start: 2008, end: 201211
  6. XANAX [Concomitant]
     Active Substance: ALPRAZOLAM
     Indication: DEPRESSION
     Route: 065
     Dates: start: 2008, end: 201408
  7. SOMA [Concomitant]
     Active Substance: CARISOPRODOL
     Indication: MIGRAINE
     Route: 065
     Dates: start: 2009, end: 201408
  8. TYLENOL PM EXTRA STRENGTH [Suspect]
     Active Substance: ACETAMINOPHEN\DIPHENHYDRAMINE HYDROCHLORIDE
     Indication: SLEEP DISORDER THERAPY
     Dosage: DOSAGE: APPROXIMATELY 9
     Route: 048
     Dates: start: 201210, end: 201211
  9. PERCOCET [Suspect]
     Active Substance: ACETAMINOPHEN\OXYCODONE HYDROCHLORIDE
     Indication: MIGRAINE
     Dosage: DOSE: 10-325
     Route: 065
     Dates: start: 2008, end: 201211
  10. SOMA [Concomitant]
     Active Substance: CARISOPRODOL
     Indication: BACK PAIN
     Route: 065
     Dates: start: 2009, end: 201408
  11. PERCOCET [Suspect]
     Active Substance: ACETAMINOPHEN\OXYCODONE HYDROCHLORIDE
     Indication: DYSMENORRHOEA
     Dosage: DOSE: 10-325
     Route: 065
     Dates: start: 2008, end: 201211
  12. TYLENOL PM EXTRA STRENGTH [Suspect]
     Active Substance: ACETAMINOPHEN\DIPHENHYDRAMINE HYDROCHLORIDE
     Indication: MIGRAINE
     Dosage: DOSAGE: APPROXIMATELY 9
     Route: 048
     Dates: start: 201210, end: 201211
  13. TYLENOL PM EXTRA STRENGTH [Suspect]
     Active Substance: ACETAMINOPHEN\DIPHENHYDRAMINE HYDROCHLORIDE
     Indication: BACK PAIN
     Dosage: DOSAGE: APPROXIMATELY 9
     Route: 048
     Dates: start: 201210, end: 201211

REACTIONS (3)
  - Overdose [Recovered/Resolved]
  - Hepatic enzyme increased [Recovered/Resolved]
  - Drug administration error [Unknown]

NARRATIVE: CASE EVENT DATE: 2012
